FAERS Safety Report 10023446 (Version 2)
Quarter: 2014Q2

REPORT INFORMATION
  Report Type: Spontaneous
  Country: US (occurrence: US)
  Receive Date: 20140320
  Receipt Date: 20140414
  Transmission Date: 20141212
  Serious: Yes (Death)
  Sender: FDA-Public Use
  Company Number: US-ROCHE-1363607

PATIENT
  Sex: Female

DRUGS (9)
  1. HERCEPTIN [Suspect]
     Indication: HER-2 POSITIVE BREAST CANCER
     Route: 065
     Dates: start: 20131113, end: 20140117
  2. PERJETA [Suspect]
     Indication: HER-2 POSITIVE BREAST CANCER
     Route: 065
     Dates: start: 20131113, end: 20140117
  3. TAXOTERE [Concomitant]
  4. CARBOPLATIN [Concomitant]
     Route: 065
     Dates: start: 20131113, end: 20140117
  5. CADUET [Concomitant]
  6. ZOLOFT [Concomitant]
  7. ENBREL [Concomitant]
  8. SYNTHROID [Concomitant]
  9. ASA [Concomitant]

REACTIONS (1)
  - Respiratory failure [Fatal]
